FAERS Safety Report 4492225-4 (Version None)
Quarter: 2004Q4

REPORT INFORMATION
  Report Type: 
  Country: None (occurrence: None)
  Receive Date: 20041101
  Receipt Date: 20041014
  Transmission Date: 20050328
  Serious: No
  Sender: FDA-Public Use
  Company Number: 440008M03USA

PATIENT
  Age: 45 Year
  Sex: Male
  Weight: 61.2356 kg

DRUGS (2)
  1. SEROSTIM [Suspect]
     Indication: ACQUIRED IMMUNODEFICIENCY SYNDROME
     Dosage: 6 MG, 1 IN 1 DAYS, SUBCUTANEOUS
     Route: 058
     Dates: start: 20030320, end: 20030512
  2. SEROSTIM [Suspect]
     Indication: CACHEXIA
     Dosage: 6 MG, 1 IN 1 DAYS, SUBCUTANEOUS
     Route: 058
     Dates: start: 20030320, end: 20030512

REACTIONS (2)
  - CARCINOMA IN SITU [None]
  - RECTAL CANCER [None]
